FAERS Safety Report 5236015-3 (Version None)
Quarter: 2007Q1

REPORT INFORMATION
  Report Type: 
  Country: None (occurrence: None)
  Receive Date: 20061208
  Receipt Date: 20060320
  Transmission Date: 20070707
  Serious: Yes (Other)
  Sender: FDA-Public Use
  Company Number: 2006UW04783

PATIENT
  Age: 68 Year
  Sex: Female
  Weight: 69.399 kg

DRUGS (5)
  1. CRESTOR [Suspect]
     Indication: BLOOD CHOLESTEROL INCREASED
     Dosage: 10 MG QD PO
     Route: 048
     Dates: start: 20051001
  2. CRESTOR [Suspect]
     Indication: BLOOD CHOLESTEROL INCREASED
     Dosage: 5 MG QD PO
     Route: 048
  3. CALCIUM [Concomitant]
  4. VITAMINS [Concomitant]
  5. COENZYME Q10 [Concomitant]

REACTIONS (2)
  - ALOPECIA [None]
  - IMPAIRED DRIVING ABILITY [None]
